FAERS Safety Report 9248796 (Version 1)
Quarter: 2013Q2

REPORT INFORMATION
  Report Type: Spontaneous
  Country: US (occurrence: None)
  Receive Date: 20130419
  Receipt Date: 20130419
  Transmission Date: 20140414
  Serious: Yes (Other)
  Sender: FDA-Public Use
  Company Number: None

PATIENT
  Age: 8 Year
  Sex: Male
  Weight: 33.57 kg

DRUGS (4)
  1. TOPIRAMATE [Suspect]
     Indication: AFFECTIVE DISORDER
     Dosage: 25 MG 1-2 QHS, ORAL
     Route: 048
     Dates: start: 20130323, end: 20130404
  2. CONCERTA [Concomitant]
  3. METHYLPHENIDATE [Concomitant]
  4. LAMOTRIGINE [Concomitant]

REACTIONS (3)
  - Arthralgia [None]
  - Arthralgia [None]
  - Sleep disorder [None]
